FAERS Safety Report 5079804-0 (Version None)
Quarter: 2006Q3

REPORT INFORMATION
  Report Type: 
  Country: None (occurrence: None)
  Receive Date: 20060720
  Receipt Date: 20050523
  Transmission Date: 20061208
  Serious: Yes (Other)
  Sender: FDA-Public Use
  Company Number: 2005078560

PATIENT
  Sex: Female
  Weight: 58.0604 kg

DRUGS (9)
  1. CELEBREX [Suspect]
     Indication: OSTEOARTHRITIS
     Dosage: 200 MG (200 MG,1 IN 1 D),ORAL
     Route: 048
  2. CELEBREX [Suspect]
     Indication: RHEUMATOID ARTHRITIS
     Dosage: 200 MG (200 MG,1 IN 1 D),ORAL
     Route: 048
  3. NITRO PATCH (GLYCERYL TRINITRATE) [Concomitant]
  4. DILTIAZEM [Concomitant]
  5. ENALAPRIL MALEATE [Concomitant]
  6. ZOCOR [Concomitant]
  7. ASPIRIN [Concomitant]
  8. SYNTHROID [Concomitant]
  9. COLCHICUM JTL LIQ [Concomitant]

REACTIONS (3)
  - ARTHRITIS [None]
  - CHEST PAIN [None]
  - CONDITION AGGRAVATED [None]
